FAERS Safety Report 18299348 (Version 4)
Quarter: 2021Q4

REPORT INFORMATION
  Report Type: Spontaneous
  Country: US (occurrence: US)
  Receive Date: 20200923
  Receipt Date: 20211022
  Transmission Date: 20220303
  Serious: No
  Sender: FDA-Public Use
  Company Number: US-HORIZON-PRO-0220-2020

PATIENT
  Sex: Male

DRUGS (7)
  1. PROCYSBI [Suspect]
     Active Substance: CYSTEAMINE BITARTRATE
     Indication: Cystinosis
     Dosage: 675MG TWO TIMES DAILY 2 SEPARATED DOSES
     Route: 048
  2. PROZAC [Concomitant]
     Active Substance: FLUOXETINE HYDROCHLORIDE
     Indication: Product used for unknown indication
  3. ONDANSETRON HYDROCHLORIDE [Concomitant]
     Active Substance: ONDANSETRON HYDROCHLORIDE
     Indication: Product used for unknown indication
  4. Lebatealol [Concomitant]
     Indication: Product used for unknown indication
  5. AMLODIPINE [Concomitant]
     Active Substance: AMLODIPINE BESYLATE
     Indication: Product used for unknown indication
  6. CYSTARAN [Concomitant]
     Active Substance: CYSTEAMINE HYDROCHLORIDE
     Indication: Product used for unknown indication
  7. SEVELAMER CARBONATE [Concomitant]
     Active Substance: SEVELAMER CARBONATE
     Indication: Product used for unknown indication

REACTIONS (8)
  - Depression [Unknown]
  - Patient dissatisfaction with treatment [Unknown]
  - Skin odour abnormal [Unknown]
  - Treatment noncompliance [Unknown]
  - Abdominal discomfort [Unknown]
  - Diarrhoea [Unknown]
  - Nausea [Unknown]
  - Illness [Unknown]
